FAERS Safety Report 9910197 (Version 1)
Quarter: 2014Q1

REPORT INFORMATION
  Report Type: Spontaneous
  Country: US (occurrence: None)
  Receive Date: 20140218
  Receipt Date: 20140218
  Transmission Date: 20141002
  Serious: Yes (Disabling)
  Sender: FDA-Public Use
  Company Number: None

PATIENT
  Age: 33 Year
  Sex: Female
  Weight: 47.63 kg

DRUGS (1)
  1. TAXOTERE [Suspect]
     Indication: BREAST CANCER STAGE I
     Dosage: 75MG/M2  EVERY 21 DAYS  INTO A VEIN
     Route: 042
     Dates: start: 20130328, end: 20130711

REACTIONS (1)
  - Alopecia [None]
